FAERS Safety Report 5705075-5 (Version None)
Quarter: 2008Q2

REPORT INFORMATION
  Report Type: 
  Country: None (occurrence: None)
  Receive Date: 20080410
  Receipt Date: 20080325
  Transmission Date: 20081010
  Serious: No
  Sender: FDA-Public Use
  Company Number: 002#2#2008-00142

PATIENT
  Age: 70 Year
  Sex: Male
  Weight: 105 kg

DRUGS (31)
  1. NEUPRO [Suspect]
     Indication: PARKINSON'S DISEASE
     Dosage: SEE IMAGE
     Route: 062
     Dates: start: 20071201, end: 20070101
  2. NEUPRO [Suspect]
     Indication: PARKINSON'S DISEASE
     Dosage: SEE IMAGE
     Route: 062
     Dates: start: 20071201, end: 20070101
  3. NEUPRO [Suspect]
     Indication: PARKINSON'S DISEASE
     Dosage: SEE IMAGE
     Route: 062
     Dates: start: 20080101, end: 20080303
  4. NEUPRO [Suspect]
     Indication: PARKINSON'S DISEASE
     Dosage: SEE IMAGE
     Route: 062
     Dates: start: 20080304, end: 20080310
  5. NEUPRO [Suspect]
     Indication: PARKINSON'S DISEASE
     Dosage: SEE IMAGE
     Route: 062
     Dates: start: 20080311, end: 20080325
  6. INSULIN INSULATARD NPH NORDISK [Concomitant]
  7. INSULIN [Concomitant]
  8. ASPIRIN [Concomitant]
  9. AMBIEN [Concomitant]
  10. ACTIGALL [Concomitant]
  11. METOPROLOL SUCCINATE [Concomitant]
  12. NITROLINGUAL [Concomitant]
  13. SINEMET [Concomitant]
  14. COMTAN [Concomitant]
  15. PRINIVIL [Concomitant]
  16. KLONOPIN [Concomitant]
  17. HEPARIN SODIUM [Concomitant]
  18. ROBAXIN [Concomitant]
  19. PARAFON FORTE [Concomitant]
  20. ESCITALOPRAM OXALATE [Concomitant]
  21. WELLBUTRIN XL [Concomitant]
  22. LIPITOR [Concomitant]
  23. PRILOSEC [Concomitant]
  24. CITRACAL [Concomitant]
  25. FOLIC ACID [Concomitant]
  26. VITAMIN B-12 [Concomitant]
  27. FERATAB [Concomitant]
  28. LASIX [Concomitant]
  29. POTASSIUM CHLORIDE [Concomitant]
  30. CENTRUM A-Z [Concomitant]
  31. PRAMIPEXOLE DIHYDROCHLORIDE [Concomitant]

REACTIONS (7)
  - APPLICATION SITE IRRITATION [None]
  - APPLICATION SITE RASH [None]
  - CONDITION AGGRAVATED [None]
  - HALLUCINATIONS, MIXED [None]
  - NAUSEA [None]
  - TREMOR [None]
  - VOMITING [None]
